FAERS Safety Report 5941464-1 (Version None)
Quarter: 2008Q4

REPORT INFORMATION
  Report Type: 
  Country: None (occurrence: None)
  Receive Date: 20081105
  Receipt Date: 20081103
  Transmission Date: 20090506
  Serious: Yes (Death)
  Sender: FDA-Public Use
  Company Number: BE-PURDUE-GBR_2008_0004540

PATIENT
  Age: 92 Year
  Sex: Male

DRUGS (6)
  1. OXYCONTIN [Suspect]
     Indication: DRUG USE FOR UNKNOWN INDICATION
     Dosage: 10 MG, BID
     Route: 065
     Dates: start: 20070815
  2. LORAZEPAM [Concomitant]
     Dosage: 2.5 MG, DAILY
     Route: 065
  3. THYRAX                             /00068002/ [Concomitant]
     Dosage: 25 MG, BID
     Route: 065
  4. OXAZEPAM [Concomitant]
     Dosage: 10 MG, DAILY
     Route: 065
  5. FUROSEMIDE [Concomitant]
     Dosage: 20 MG, DAILY
     Route: 065
  6. ASASANTIN                          /00580301/ [Concomitant]
     Dosage: 25/200 MG
     Route: 065

REACTIONS (1)
  - CARDIAC FAILURE [None]
